FAERS Safety Report 6504104-9 (Version None)
Quarter: 2009Q4

REPORT INFORMATION
  Report Type: 
  Country: None (occurrence: None)
  Receive Date: 20091217
  Receipt Date: 20091124
  Transmission Date: 20100525
  Serious: Yes (Hospitalization)
  Sender: FDA-Public Use
  Company Number: GB-B.I. PHARMACEUTICALS,INC./RIDGEFIELD-2009-UK-01053UK

PATIENT
  Age: 76 Year
  Sex: Female

DRUGS (6)
  1. PRADAXA [Suspect]
     Indication: THROMBOSIS PROPHYLAXIS
     Dosage: REPORTED AS 'LOWER DOSE'.
     Dates: start: 20091118
  2. DIPYRIDAMOLE [Suspect]
     Indication: CEREBROVASCULAR ACCIDENT PROPHYLAXIS
     Dates: start: 20091113
  3. ASPIRIN [Suspect]
     Indication: CEREBROVASCULAR ACCIDENT
     Dates: start: 20091113, end: 20091124
  4. VARIOUS PAINKILLERS [Concomitant]
  5. AMOXICILLIN [Concomitant]
     Indication: CYSTITIS
  6. SIMVASTATIN [Concomitant]
     Indication: CEREBROVASCULAR ACCIDENT
     Dates: start: 20091113

REACTIONS (3)
  - ANAEMIA [None]
  - DECREASED APPETITE [None]
  - JOINT DISLOCATION [None]
